FAERS Safety Report 15733728 (Version 1)
Quarter: 2018Q4

REPORT INFORMATION
  Report Type: Spontaneous
  Country: US (occurrence: US)
  Receive Date: 20181218
  Receipt Date: 20181218
  Transmission Date: 20190205
  Serious: No
  Sender: FDA-Public Use
  Company Number: US-BIOGEN-2018BI00673392

PATIENT
  Sex: Male

DRUGS (1)
  1. TECFIDERA [Suspect]
     Active Substance: DIMETHYL FUMARATE
     Indication: MULTIPLE SCLEROSIS
     Route: 048
     Dates: start: 20150403, end: 20161206

REACTIONS (5)
  - Vision blurred [Unknown]
  - Flushing [Unknown]
  - Fatigue [Unknown]
  - Urinary incontinence [Unknown]
  - Bipolar disorder [Unknown]
